FAERS Safety Report 16718613 (Version 2)
Quarter: 2019Q3

REPORT INFORMATION
  Report Type: Spontaneous
  Country: US (occurrence: US)
  Receive Date: 20190820
  Receipt Date: 20190911
  Transmission Date: 20191005
  Serious: Yes (Death, Hospitalization)
  Sender: FDA-Public Use
  Company Number: US-HORIZON-PRE-0383-2019

PATIENT
  Age: 16 Year
  Sex: Male

DRUGS (2)
  1. INFLIXIMAB [Suspect]
     Active Substance: INFLIXIMAB
     Indication: INFLAMMATORY BOWEL DISEASE
  2. PREDNISONE. [Suspect]
     Active Substance: PREDNISONE
     Indication: INFLAMMATORY BOWEL DISEASE

REACTIONS (2)
  - Malignant transformation [Fatal]
  - Central nervous system melanoma [Fatal]
